FAERS Safety Report 12907547 (Version 3)
Quarter: 2017Q1

REPORT INFORMATION
  Report Type: Spontaneous
  Country: RU (occurrence: RU)
  Receive Date: 20161103
  Receipt Date: 20170124
  Transmission Date: 20170428
  Serious: Yes (Other)
  Sender: FDA-Public Use
  Company Number: RU-REGENERON PHARMACEUTICALS, INC.-2016-23244

PATIENT

DRUGS (1)
  1. EYLEA [Suspect]
     Active Substance: AFLIBERCEPT
     Indication: NEOVASCULAR AGE-RELATED MACULAR DEGENERATION
     Dosage: 2 MG/0.05 ML, IN ONE EYE (UNSPECIFIED)
     Route: 031
     Dates: start: 20161006, end: 20161006

REACTIONS (3)
  - Eye haemorrhage [Recovering/Resolving]
  - Visual impairment [Unknown]
  - Blindness [Unknown]

NARRATIVE: CASE EVENT DATE: 201610
